FAERS Safety Report 16296292 (Version 2)
Quarter: 2019Q2

REPORT INFORMATION
  Report Type: Spontaneous
  Country: US (occurrence: US)
  Receive Date: 20190510
  Receipt Date: 20190626
  Transmission Date: 20190711
  Serious: No
  Sender: FDA-Public Use
  Company Number: US-PFIZER INC-2019198946

PATIENT
  Age: 68 Year
  Sex: Male
  Weight: 75 kg

DRUGS (1)
  1. XELJANZ [Suspect]
     Active Substance: TOFACITINIB CITRATE
     Indication: COLITIS ULCERATIVE
     Dosage: 10 MG, 2X/DAY
     Route: 048
     Dates: start: 20190405

REACTIONS (5)
  - Hiccups [Unknown]
  - Weight decreased [Unknown]
  - Eructation [Unknown]
  - Skin atrophy [Unknown]
  - Contusion [Unknown]

NARRATIVE: CASE EVENT DATE: 2019
